FAERS Safety Report 5430212-X (Version None)
Quarter: 2007Q3

REPORT INFORMATION
  Report Type: 
  Country: None (occurrence: None)
  Receive Date: 20070731
  Receipt Date: 20070511
  Transmission Date: 20080115
  Serious: No
  Sender: FDA-Public Use
  Company Number: US200705003550

PATIENT
  Age: 69 Year
  Sex: Female

DRUGS (3)
  1. BYETTA [Suspect]
     Indication: TYPE 2 DIABETES MELLITUS
     Dosage: 5 UG, 2/D, SUBCUTANEOUS ; 10 UG, 2/D, SUBCUTANEOUS
     Route: 058
     Dates: start: 20061101, end: 20061201
  2. BYETTA [Suspect]
     Indication: TYPE 2 DIABETES MELLITUS
     Dosage: 5 UG, 2/D, SUBCUTANEOUS ; 10 UG, 2/D, SUBCUTANEOUS
     Route: 058
     Dates: start: 20061201
  3. EXENATIDE 5MCG PEN,DISPOSABLE DEVICE (EXENATIDE PEN (5MCG)) PEN,DISPOS [Concomitant]

REACTIONS (9)
  - ACCIDENTAL OVERDOSE [None]
  - DECREASED APPETITE [None]
  - FEELING ABNORMAL [None]
  - HUNGER [None]
  - INCORRECT DOSE ADMINISTERED [None]
  - INDURATION [None]
  - MALAISE [None]
  - URINARY TRACT INFECTION [None]
  - VOMITING [None]
